FAERS Safety Report 15284075 (Version 2)
Quarter: 2018Q4

REPORT INFORMATION
  Report Type: Spontaneous
  Country: US (occurrence: US)
  Receive Date: 20180816
  Receipt Date: 20181001
  Transmission Date: 20190204
  Serious: Yes (Hospitalization, Other)
  Sender: FDA-Public Use
  Company Number: US-B.I. PHARMACEUTICALS,INC./RIDGEFIELD-2018-BI-040782

PATIENT
  Age: 68 Year
  Sex: Male

DRUGS (2)
  1. PRADAXA [Suspect]
     Active Substance: DABIGATRAN ETEXILATE MESYLATE
     Indication: ATRIAL FIBRILLATION
  2. PRADAXA [Suspect]
     Active Substance: DABIGATRAN ETEXILATE MESYLATE
     Indication: CEREBROVASCULAR ACCIDENT PROPHYLAXIS
     Route: 048
     Dates: start: 2014

REACTIONS (6)
  - Tooth fracture [Recovered/Resolved]
  - Fall [Recovered/Resolved]
  - Hip fracture [Not Recovered/Not Resolved]
  - Tooth infection [Recovered/Resolved]
  - Vision blurred [Unknown]
  - Weight decreased [Unknown]

NARRATIVE: CASE EVENT DATE: 201807
